FAERS Safety Report 8847903 (Version 2)
Quarter: 2012Q4

REPORT INFORMATION
  Report Type: 
  Country: US (occurrence: US)
  Receive Date: 20121018
  Receipt Date: 20121113
  Transmission Date: 20130627
  Serious: Yes (Death, Other)
  Sender: FDA-Public Use
  Company Number: US-PFIZER INC-2012257385

PATIENT
  Age: 88 Year
  Sex: Male

DRUGS (1)
  1. REVATIO [Suspect]
     Indication: PULMONARY HYPERTENSION
     Dosage: 20 mg, 3x/day

REACTIONS (4)
  - Myocardial infarction [Fatal]
  - Cardiac disorder [Fatal]
  - Cardiac arrest [Fatal]
  - Aortic stenosis [Unknown]
